FAERS Safety Report 9229034 (Version 1)
Quarter: 2013Q2

REPORT INFORMATION
  Report Type: Spontaneous
  Country: US (occurrence: US)
  Receive Date: 20130412
  Receipt Date: 20130412
  Transmission Date: 20140414
  Serious: Yes (Other)
  Sender: FDA-Public Use
  Company Number: US-NICOBRDEV-2013-05793

PATIENT
  Age: 32 Year
  Sex: Male

DRUGS (1)
  1. SIMVASTATIN (UNKNOWN) [Suspect]
     Indication: COMBINED HYPERLIPIDAEMIA
     Dosage: UNKNOWN
     Route: 065

REACTIONS (4)
  - Anaphylactic reaction [Unknown]
  - Laryngeal oedema [Unknown]
  - Urticaria [Unknown]
  - Pruritus [Unknown]
